FAERS Safety Report 8333536 (Version 2)
Quarter: 2013Q1

REPORT INFORMATION
  Report Type: Spontaneous
  Country: US (occurrence: US)
  Receive Date: 20120112
  Receipt Date: 20130111
  Transmission Date: 20140127
  Serious: Yes (Hospitalization)
  Sender: FDA-Public Use
  Company Number: US-BAYER-2012-002961

PATIENT
  Age: 41 Year
  Sex: Female
  Weight: 92.97 kg

DRUGS (9)
  1. YAZ [Suspect]
     Indication: ACNE
     Dosage: UNK
     Dates: start: 200610, end: 200903
  2. YAZ [Suspect]
     Indication: PREMENSTRUAL SYNDROME
  3. BETA BLOCKING AGENTS [Concomitant]
  4. PROPRANOLOL [Concomitant]
     Dosage: 5 MG, DAILY
  5. PRISTIQ [Concomitant]
     Dosage: 100 MG EVERY MORNING
  6. CLONAZEPAM [Concomitant]
     Dosage: 0.5 MG P.R.N
  7. EFFEXOR [Concomitant]
     Indication: DEPRESSION
     Dosage: UNK
     Dates: start: 2000, end: 2010
  8. EFFEXOR [Concomitant]
     Indication: ANXIETY
  9. LEXAPRO [Concomitant]
     Dosage: 10 MG, UNK

REACTIONS (10)
  - Pulmonary embolism [None]
  - Pulmonary embolism [None]
  - Injury [None]
  - Pain [None]
  - Palpitations [None]
  - Dyspnoea [None]
  - Chest discomfort [None]
  - Cough [None]
  - Dizziness [None]
  - Fear [None]
